FAERS Safety Report 20821988 (Version 1)
Quarter: 2022Q2

REPORT INFORMATION
  Report Type: Spontaneous
  Country: US (occurrence: None)
  Receive Date: 20220512
  Receipt Date: 20220512
  Transmission Date: 20220721
  Serious: Yes (unspecified)
  Sender: FDA-Public Use
  Company Number: None

PATIENT
  Age: 58 Year
  Sex: Female

DRUGS (1)
  1. EMGALITY [Suspect]
     Active Substance: GALCANEZUMAB-GNLM
     Indication: Migraine
     Dosage: FREQUENCY : ONCE;?
     Route: 058
     Dates: start: 20220210

REACTIONS (3)
  - Injection site pain [None]
  - Incorrect dose administered [None]
  - Therapy cessation [None]

NARRATIVE: CASE EVENT DATE: 20220401
